FAERS Safety Report 7275398-X (Version None)
Quarter: 2011Q1

REPORT INFORMATION
  Report Type: 
  Country: None (occurrence: None)
  Receive Date: 20110204
  Receipt Date: 20110131
  Transmission Date: 20110831
  Serious: Yes (Death)
  Sender: FDA-Public Use
  Company Number: CA-ROCHE-756393

PATIENT
  Sex: Female

DRUGS (4)
  1. CAPECITABINE [Suspect]
     Indication: BREAST CANCER
     Route: 048
     Dates: start: 20101102, end: 20110117
  2. RAMIPRIL [Concomitant]
  3. SYNTHROID [Concomitant]
  4. CRESTOR [Concomitant]

REACTIONS (1)
  - DEATH [None]
